FAERS Safety Report 18004810 (Version 1)
Quarter: 2020Q3

REPORT INFORMATION
  Report Type: Spontaneous
  Country: US (occurrence: US)
  Receive Date: 20200709
  Receipt Date: 20200709
  Transmission Date: 20201103
  Serious: No
  Sender: FDA-Public Use
  Company Number: None

PATIENT
  Age: 77 Year
  Sex: Male
  Weight: 72.12 kg

DRUGS (2)
  1. BUDESONIDE SOLUTION [Suspect]
     Active Substance: BUDESONIDE
  2. N95 MASK [Suspect]
     Active Substance: DEVICE

REACTIONS (3)
  - Nasal irrigation [None]
  - Nasal discharge discolouration [None]
  - Poor quality device used [None]

NARRATIVE: CASE EVENT DATE: 20200630
